FAERS Safety Report 9726471 (Version 2)
Quarter: 2013Q4

REPORT INFORMATION
  Report Type: Spontaneous
  Country: JP (occurrence: JP)
  Receive Date: 20131203
  Receipt Date: 20131218
  Transmission Date: 20140711
  Serious: Yes (Hospitalization, Other)
  Sender: FDA-Public Use
  Company Number: JP-BRISTOL-MYERS SQUIBB COMPANY-19866995

PATIENT
  Age: 47 Year
  Sex: Male

DRUGS (4)
  1. METGLUCO [Suspect]
     Indication: DIABETES MELLITUS
     Route: 048
     Dates: start: 201310, end: 20131114
  2. NU-LOTAN [Concomitant]
     Indication: HYPERTENSION
     Route: 048
  3. LIVALO [Concomitant]
     Indication: LIPIDS ABNORMAL
     Route: 048
  4. ETHYL EICOSAPENTAENOATE [Concomitant]
     Indication: LIPIDS ABNORMAL
     Route: 048

REACTIONS (1)
  - Drug-induced liver injury [Not Recovered/Not Resolved]
